FAERS Safety Report 14683993 (Version 3)
Quarter: 2018Q3

REPORT INFORMATION
  Report Type: Spontaneous
  Country: CZ (occurrence: CZ)
  Receive Date: 20180327
  Receipt Date: 20180705
  Transmission Date: 20181010
  Serious: Yes (Hospitalization)
  Sender: FDA-Public Use
  Company Number: CZ-ALLERGAN-1816012US

PATIENT
  Sex: Female

DRUGS (14)
  1. CEFTAROLINE FOSAMIL ? BP [Suspect]
     Active Substance: CEFTAROLINE FOSAMIL
     Indication: MEDIASTINITIS
  2. METRONIDAZOLE UNK [Suspect]
     Active Substance: METRONIDAZOLE
     Indication: SKIN ULCER
  3. CEFTAROLINE FOSAMIL ? BP [Suspect]
     Active Substance: CEFTAROLINE FOSAMIL
     Indication: PNEUMONIA
  4. CEFTAROLINE FOSAMIL ? BP [Suspect]
     Active Substance: CEFTAROLINE FOSAMIL
     Indication: SKIN ULCER
  5. METRONIDAZOLE UNK [Suspect]
     Active Substance: METRONIDAZOLE
     Indication: MEDIASTINITIS
  6. METRONIDAZOLE UNK [Suspect]
     Active Substance: METRONIDAZOLE
     Indication: PNEUMONIA
  7. METRONIDAZOLE UNK [Suspect]
     Active Substance: METRONIDAZOLE
     Indication: ABSCESS
     Dosage: 1 G, BID
     Route: 065
  8. CEFTAROLINE FOSAMIL ? BP [Suspect]
     Active Substance: CEFTAROLINE FOSAMIL
     Indication: ABSCESS
  9. GENTAMICIN UNK [Suspect]
     Active Substance: GENTAMICIN
     Indication: ABSCESS
     Dosage: 240 MG, QD
     Route: 065
  10. GENTAMICIN UNK [Suspect]
     Active Substance: GENTAMICIN
     Indication: SKIN ULCER
  11. MYCOMAX [Concomitant]
     Active Substance: FLUCONAZOLE
     Indication: FUNGAL INFECTION
     Dosage: 800 MG, BID
     Route: 065
  12. CEFTAROLINE FOSAMIL ? BP [Suspect]
     Active Substance: CEFTAROLINE FOSAMIL
     Indication: SEPTIC SHOCK
     Dosage: 600 MG, BID
     Route: 065
  13. GENTAMICIN UNK [Suspect]
     Active Substance: GENTAMICIN
     Indication: PNEUMONIA
  14. GENTAMICIN UNK [Suspect]
     Active Substance: GENTAMICIN
     Indication: MEDIASTINITIS

REACTIONS (4)
  - Drug ineffective [Unknown]
  - Inflammatory marker increased [Recovered/Resolved]
  - Off label use [Unknown]
  - Drug ineffective for unapproved indication [Unknown]
